FAERS Safety Report 6740002-3 (Version None)
Quarter: 2010Q2

REPORT INFORMATION
  Report Type: 
  Country: None (occurrence: None)
  Receive Date: 20100521
  Receipt Date: 20100507
  Transmission Date: 20101027
  Serious: Yes (Hospitalization, Disabling)
  Sender: FDA-Public Use
  Company Number: DSA_33223_2009

PATIENT
  Age: 75 Year
  Sex: Male

DRUGS (11)
  1. BI-TILDIEM    (BI-TILDIEM - DILTIAZEM HYDROCHLORIDE) 90 MG (NOT SPECIF [Suspect]
     Indication: DRUG USE FOR UNKNOWN INDICATION
     Dosage: 90 MG BID ORAL
     Route: 048
  2. FUROSEMIDE [Suspect]
     Indication: DRUG USE FOR UNKNOWN INDICATION
     Dosage: 10 MG BID ORAL
     Route: 048
  3. NICORANDIL (NICORANDIL) [Suspect]
     Indication: DRUG USE FOR UNKNOWN INDICATION
     Dosage: DF ORAL
     Route: 048
  4. ALDACTONE [Suspect]
     Indication: DRUG USE FOR UNKNOWN INDICATION
     Dosage: 50 MG BID ORAL
     Route: 048
  5. NITROGLYCERIN [Suspect]
     Indication: DRUG USE FOR UNKNOWN INDICATION
     Dosage: 10 MG QD ORAL
     Route: 048
  6. SIMVASTATIN [Concomitant]
  7. DIAMICRON [Concomitant]
  8. ZOLPIDEM [Concomitant]
  9. OMEPRAZOLE [Concomitant]
  10. CORTANCYL [Concomitant]
  11. KALEORID [Concomitant]

REACTIONS (2)
  - FALL [None]
  - TIBIA FRACTURE [None]
